FAERS Safety Report 15674852 (Version 1)
Quarter: 2018Q4

REPORT INFORMATION
  Report Type: Report from Study
  Country: DE (occurrence: DE)
  Receive Date: 20181130
  Receipt Date: 20181130
  Transmission Date: 20190205
  Serious: Yes (Other)
  Sender: FDA-Public Use
  Company Number: DE-INCYTE CORPORATION-2018IN004060

PATIENT

DRUGS (4)
  1. INCB018424 [Suspect]
     Active Substance: RUXOLITINIB
     Dosage: 30 MG, QD
     Route: 048
     Dates: start: 20180106
  2. INCB018424 [Suspect]
     Active Substance: RUXOLITINIB
     Dosage: 20 MG, QD
     Route: 048
     Dates: start: 20170918, end: 20180105
  3. INCB018424 [Suspect]
     Active Substance: RUXOLITINIB
     Indication: PRIMARY MYELOFIBROSIS
     Dosage: 40 MG, QD
     Route: 048
     Dates: start: 20170630
  4. PRADAXA [Concomitant]
     Active Substance: DABIGATRAN ETEXILATE MESYLATE
     Indication: ATRIAL FIBRILLATION
     Dosage: 300 MG, QD
     Route: 065
     Dates: start: 20170321

REACTIONS (8)
  - Polyneuropathy [Recovering/Resolving]
  - Lumbar vertebral fracture [Not Recovered/Not Resolved]
  - Hypoaesthesia [Unknown]
  - Nasopharyngitis [Recovered/Resolved]
  - Muscular weakness [Unknown]
  - Herpes zoster [Not Recovered/Not Resolved]
  - Bronchitis [Recovered/Resolved]
  - Pain [Unknown]

NARRATIVE: CASE EVENT DATE: 20171214
